FAERS Safety Report 7738530-7 (Version None)
Quarter: 2011Q3

REPORT INFORMATION
  Report Type: 
  Country: None (occurrence: None)
  Receive Date: 20110908
  Receipt Date: 20110830
  Transmission Date: 20111222
  Serious: Yes (Hospitalization, Other)
  Sender: FDA-Public Use
  Company Number: AT-ABBOTT-11P-009-0850364-00

PATIENT
  Sex: Male
  Weight: 126 kg

DRUGS (15)
  1. PREDNISOLONE [Concomitant]
     Dosage: 12.5 MG IN THE MORNING
     Dates: start: 20110727, end: 20110727
  2. TROMBO ASS 100 [Concomitant]
     Indication: PRODUCT USED FOR UNKNOWN INDICATION
     Dosage: IN THE AFTERNOON
  3. SELOKEN RETARD [Concomitant]
     Indication: PRODUCT USED FOR UNKNOWN INDICATION
     Dosage: IN THE MORNING
  4. MAGNOSOLV [Concomitant]
     Indication: PRODUCT USED FOR UNKNOWN INDICATION
  5. DICLOFENAC SODIUM [Concomitant]
     Indication: PAIN
     Dosage: SELDOM
  6. PREDNISOLONE [Concomitant]
     Indication: PRODUCT USED FOR UNKNOWN INDICATION
     Dosage: 25 MG IN THE MORNING
     Dates: start: 20110726, end: 20110726
  7. LEVOFLOXACIN [Concomitant]
     Indication: PRODUCT USED FOR UNKNOWN INDICATION
  8. FENOFIBRATE [Suspect]
     Indication: BLOOD TRIGLYCERIDES INCREASED
     Dosage: 200 MG IN THE MORNING
     Dates: start: 20110629, end: 20110719
  9. FURON [Concomitant]
     Indication: PRODUCT USED FOR UNKNOWN INDICATION
  10. CRESTOR [Concomitant]
     Indication: PRODUCT USED FOR UNKNOWN INDICATION
     Dosage: IN THE MORNING
  11. AERIOUS FILM COATED TABLETS [Concomitant]
     Indication: PRODUCT USED FOR UNKNOWN INDICATION
     Dosage: ON DEMAND
  12. FOSICOMB [Concomitant]
     Indication: PRODUCT USED FOR UNKNOWN INDICATION
     Dosage: ONE IN THE MORNING
  13. FOSICOMB [Concomitant]
     Dosage: 1/2 IN THE MORNING
  14. ALLOPURINOL [Concomitant]
     Indication: PRODUCT USED FOR UNKNOWN INDICATION
     Dosage: AT NIGHT
  15. FENOFIBRATE [Suspect]
     Indication: BLOOD CHOLESTEROL INCREASED

REACTIONS (12)
  - SCIATICA [None]
  - AORTIC ARTERIOSCLEROSIS [None]
  - AORTIC ELONGATION [None]
  - PROTEINURIA [None]
  - HAEMATURIA [None]
  - HEPATITIS [None]
  - HERPES SIMPLEX [None]
  - RENAL FAILURE ACUTE [None]
  - EPSTEIN-BARR VIRUS INFECTION [None]
  - GENERAL PHYSICAL HEALTH DETERIORATION [None]
  - PYELONEPHRITIS [None]
  - SPONDYLOARTHROPATHY [None]
